FAERS Safety Report 16853642 (Version 1)
Quarter: 2019Q4

REPORT INFORMATION
  Report Type: Spontaneous
  Country: US (occurrence: US)
  Receive Date: 20190925
  Receipt Date: 20190925
  Transmission Date: 20200122
  Serious: Yes (Hospitalization)
  Sender: FDA-Public Use
  Company Number: None

PATIENT
  Age: 53 Year
  Sex: Female

DRUGS (1)
  1. PULMOZYME [Suspect]
     Active Substance: DORNASE ALFA
     Indication: CYTOGENETIC ABNORMALITY
     Route: 055
     Dates: start: 20180523

REACTIONS (1)
  - Pneumonia bacterial [None]

NARRATIVE: CASE EVENT DATE: 20190923
